FAERS Safety Report 25824008 (Version 1)
Quarter: 2025Q3

REPORT INFORMATION
  Report Type: Spontaneous
  Country: US (occurrence: None)
  Receive Date: 20250919
  Receipt Date: 20250919
  Transmission Date: 20251021
  Serious: Yes (Life-Threatening, Hospitalization, Disabling, Other)
  Sender: FDA-CTU
  Company Number: None

PATIENT

DRUGS (6)
  1. PANTOPRAZOLE SODIUM [Suspect]
     Active Substance: PANTOPRAZOLE SODIUM
  2. IRBESARTAN [Concomitant]
     Active Substance: IRBESARTAN
  3. ATORVASTATIN [Concomitant]
     Active Substance: ATORVASTATIN
  4. COLESTIPOL [Concomitant]
     Active Substance: COLESTIPOL
  5. Lutein + Zeaxanthin [Concomitant]
  6. ZYRTEC [Concomitant]
     Active Substance: CETIRIZINE HYDROCHLORIDE

REACTIONS (8)
  - Vertigo [None]
  - Rib fracture [None]
  - Tooth extraction [None]
  - Osteomyelitis [None]
  - Osteonecrosis of jaw [None]
  - Bone graft [None]
  - Injury [None]
  - Bone loss [None]

NARRATIVE: CASE EVENT DATE: 20250831
